FAERS Safety Report 18570045 (Version 1)
Quarter: 2020Q4

REPORT INFORMATION
  Report Type: Spontaneous
  Country: US (occurrence: US)
  Receive Date: 20201202
  Receipt Date: 20201202
  Transmission Date: 20210114
  Serious: No
  Sender: FDA-Public Use
  Company Number: US-ASTRAZENECA-2020SF50468

PATIENT
  Sex: Male
  Weight: 133.8 kg

DRUGS (2)
  1. BYDUREON BCISE [Suspect]
     Active Substance: EXENATIDE
     Indication: DIABETES MELLITUS
     Route: 058
     Dates: start: 20190515
  2. BYDUREON [Suspect]
     Active Substance: EXENATIDE
     Indication: DIABETES MELLITUS
     Route: 058
     Dates: end: 20190508

REACTIONS (6)
  - Incorrect dose administered by device [Unknown]
  - Device leakage [Unknown]
  - Injection site haemorrhage [Unknown]
  - Surgery [Unknown]
  - Scar [Unknown]
  - Skin induration [Unknown]
